FAERS Safety Report 5530914-0 (Version None)
Quarter: 2007Q4

REPORT INFORMATION
  Report Type: 
  Country: None (occurrence: None)
  Receive Date: 20071130
  Receipt Date: 20071119
  Transmission Date: 20080405
  Serious: Yes (Other)
  Sender: FDA-Public Use
  Company Number: US-PFIZER INC-2007080997

PATIENT
  Age: 35 Year
  Sex: Female
  Weight: 59 kg

DRUGS (6)
  1. CHANTIX [Suspect]
     Indication: SMOKING CESSATION THERAPY
     Dates: start: 20070901, end: 20070921
  2. CHANTIX [Suspect]
     Indication: TOBACCO ABUSE
  3. VITAMINS [Concomitant]
  4. TEA, GREEN [Concomitant]
  5. ANTIDEPRESSANTS [Concomitant]
  6. ANXIOLYTICS [Concomitant]

REACTIONS (5)
  - ABNORMAL DREAMS [None]
  - AGGRESSION [None]
  - CONSTIPATION [None]
  - LOSS OF CONSCIOUSNESS [None]
  - SCREAMING [None]
